FAERS Safety Report 8479773-7 (Version None)
Quarter: 2012Q2

REPORT INFORMATION
  Report Type: 
  Country: None (occurrence: None)
  Receive Date: 20120629
  Receipt Date: 20120621
  Transmission Date: 20120825
  Serious: Yes (Other)
  Sender: FDA-Public Use
  Company Number: US-ABBOTT-12P-163-0949205-00

PATIENT
  Age: 71 Year
  Sex: Male

DRUGS (11)
  1. LAMICTAL [Concomitant]
     Indication: PRODUCT USED FOR UNKNOWN INDICATION
     Dosage: AT NIGHT
  2. CALCIUM [Concomitant]
     Indication: PRODUCT USED FOR UNKNOWN INDICATION
     Dosage: IN MORNING
  3. ALLEGRA [Concomitant]
     Indication: PRODUCT USED FOR UNKNOWN INDICATION
     Dosage: AT BEDTIME
  4. VIMPAT [Concomitant]
     Indication: PAROSMIA
  5. MELOXICAN [Concomitant]
     Indication: PRODUCT USED FOR UNKNOWN INDICATION
  6. VIIBRYD [Concomitant]
     Indication: DEPRESSION
     Dosage: IN MORNING
  7. HUMIRA [Suspect]
     Indication: PSORIASIS
     Route: 058
     Dates: start: 20080101
  8. ATARAX [Concomitant]
     Indication: PRODUCT USED FOR UNKNOWN INDICATION
     Dosage: AT BEDTIME
  9. LOTENSIN [Concomitant]
     Indication: PRODUCT USED FOR UNKNOWN INDICATION
  10. VITAMIN D [Concomitant]
     Indication: PRODUCT USED FOR UNKNOWN INDICATION
  11. XANAX [Concomitant]
     Indication: PRODUCT USED FOR UNKNOWN INDICATION
     Dosage: AT NIGHT

REACTIONS (9)
  - CONVULSION [None]
  - ASTHMA [None]
  - PRURITUS [None]
  - RASH PRURITIC [None]
  - ASTHENIA [None]
  - RASH ERYTHEMATOUS [None]
  - FALL [None]
  - RASH [None]
  - GASTROOESOPHAGEAL REFLUX DISEASE [None]
